FAERS Safety Report 9766931 (Version 1)
Quarter: 2013Q4

REPORT INFORMATION
  Report Type: Spontaneous
  Country: US (occurrence: US)
  Receive Date: 20131217
  Receipt Date: 20131217
  Transmission Date: 20140711
  Serious: No
  Sender: FDA-Public Use
  Company Number: US-GLAXOSMITHKLINE-A1034411A

PATIENT
  Age: 59 Year
  Sex: Male

DRUGS (2)
  1. VOTRIENT [Suspect]
     Indication: PRODUCT USED FOR UNKNOWN INDICATION
     Dosage: 600MG PER DAY
     Route: 048
  2. LOVENOX [Suspect]
     Indication: THROMBOSIS
     Route: 042

REACTIONS (2)
  - Muscle spasms [Not Recovered/Not Resolved]
  - Thrombosis [Unknown]
